FAERS Safety Report 10020384 (Version 1)
Quarter: 2014Q1

REPORT INFORMATION
  Report Type: Spontaneous
  Country: US (occurrence: US)
  Receive Date: 20140319
  Receipt Date: 20140319
  Transmission Date: 20141002
  Serious: No
  Sender: FDA-Public Use
  Company Number: US-BIOGENIDEC-2014BI022364

PATIENT
  Age: 64 Year
  Sex: Female

DRUGS (1)
  1. TECFIDERA [Suspect]
     Indication: PRODUCT USED FOR UNKNOWN INDICATION
     Dates: start: 20130923

REACTIONS (5)
  - Local swelling [Not Recovered/Not Resolved]
  - Blood pressure increased [Unknown]
  - Feeling hot [Recovered/Resolved]
  - Erythema [Recovered/Resolved]
  - White blood cell count decreased [Not Recovered/Not Resolved]
